FAERS Safety Report 5202168-6 (Version None)
Quarter: 2007Q1

REPORT INFORMATION
  Report Type: 
  Country: None (occurrence: None)
  Receive Date: 20070109
  Receipt Date: 20070102
  Transmission Date: 20070707
  Serious: Yes (Hospitalization)
  Sender: FDA-Public Use
  Company Number: IT-ROCHE-476898

PATIENT
  Age: 44 Year
  Sex: Female

DRUGS (2)
  1. LARIAM [Suspect]
     Indication: PROPHYLAXIS
     Route: 048
     Dates: start: 20061015, end: 20061205
  2. AMOXICILLIN [Suspect]
     Route: 048
     Dates: start: 20061209, end: 20061215

REACTIONS (2)
  - ANGIOEDEMA [None]
  - URTICARIA [None]
